FAERS Safety Report 7459872-9 (Version None)
Quarter: 2011Q2

REPORT INFORMATION
  Report Type: 
  Country: None (occurrence: None)
  Receive Date: 20110504
  Receipt Date: 20110504
  Transmission Date: 20111010
  Serious: Yes (Other)
  Sender: FDA-Public Use
  Company Number: None

PATIENT
  Age: 45 Year
  Sex: Female
  Weight: 90.7194 kg

DRUGS (1)
  1. CYMBALTA [Suspect]
     Indication: DEPRESSION
     Dosage: VARIED
     Dates: start: 20090901, end: 20110401

REACTIONS (26)
  - SEXUAL DYSFUNCTION [None]
  - IRRITABILITY [None]
  - ARTHRALGIA [None]
  - PRURITUS [None]
  - RESTLESSNESS [None]
  - FEELING ABNORMAL [None]
  - CONFUSIONAL STATE [None]
  - SLEEP DISORDER [None]
  - FREQUENT BOWEL MOVEMENTS [None]
  - BRUXISM [None]
  - HYPOAESTHESIA [None]
  - MUSCULOSKELETAL STIFFNESS [None]
  - RASH [None]
  - MEMORY IMPAIRMENT [None]
  - COGNITIVE DISORDER [None]
  - OEDEMA PERIPHERAL [None]
  - WEIGHT INCREASED [None]
  - DRUG WITHDRAWAL SYNDROME [None]
  - WRONG TECHNIQUE IN DRUG USAGE PROCESS [None]
  - DRUG INEFFECTIVE [None]
  - MYALGIA [None]
  - FLUID RETENTION [None]
  - BLUNTED AFFECT [None]
  - ANGER [None]
  - ANXIETY [None]
  - MUSCLE TWITCHING [None]
